FAERS Safety Report 10080597 (Version 2)
Quarter: 2014Q2

REPORT INFORMATION
  Report Type: Spontaneous
  Country: US (occurrence: US)
  Receive Date: 20140416
  Receipt Date: 20140423
  Transmission Date: 20141212
  Serious: Yes (Death, Hospitalization)
  Sender: FDA-Public Use
  Company Number: US-BAYER-2014-055345

PATIENT
  Age: 79 Year
  Sex: Male

DRUGS (1)
  1. XOFIGO [Suspect]
     Indication: HORMONE-REFRACTORY PROSTATE CANCER
     Dosage: DAILY DOSE 124.69 MCI
     Route: 042
     Dates: start: 20140131

REACTIONS (4)
  - Dizziness [None]
  - Gait disturbance [None]
  - Death [Fatal]
  - Cerebrovascular accident [None]
